FAERS Safety Report 15285100 (Version 2)
Quarter: 2018Q3

REPORT INFORMATION
  Report Type: Spontaneous
  Country: US (occurrence: US)
  Receive Date: 20180816
  Receipt Date: 20180925
  Transmission Date: 20181010
  Serious: No
  Sender: FDA-Public Use
  Company Number: US-ASTRAZENECA-2018SE94454

PATIENT
  Sex: Male
  Weight: 65.8 kg

DRUGS (3)
  1. METAMUCIL [Concomitant]
     Active Substance: PLANTAGO SEED
  2. SYMBICORT [Suspect]
     Active Substance: BUDESONIDE\FORMOTEROL FUMARATE DIHYDRATE
     Indication: CHRONIC OBSTRUCTIVE PULMONARY DISEASE
     Dosage: 160/4.5MCG 2 PUFFS IN THE MORNING, 2 PUFFS AT NIGHT
     Route: 055
  3. SYMBICORT [Suspect]
     Active Substance: BUDESONIDE\FORMOTEROL FUMARATE DIHYDRATE
     Indication: CHRONIC OBSTRUCTIVE PULMONARY DISEASE
     Dosage: 160/4.5MCG 2 PUFFS IN THE MORNING, 2 PUFFS AT NIGHT
     Route: 055
     Dates: start: 20180706

REACTIONS (6)
  - Device failure [Unknown]
  - Bronchial disorder [Unknown]
  - Pneumonia [Unknown]
  - Product storage error [Unknown]
  - Drug dose omission [Unknown]
  - Body height decreased [Unknown]
